FAERS Safety Report 5102190-4 (Version None)
Quarter: 2006Q3

REPORT INFORMATION
  Report Type: 
  Country: None (occurrence: None)
  Receive Date: 20060912
  Receipt Date: 20060830
  Transmission Date: 20061208
  Serious: Yes (Hospitalization)
  Sender: FDA-Public Use
  Company Number: JP-BRISTOL-MYERS SQUIBB COMPANY-13500590

PATIENT
  Age: 30 Year
  Sex: Female

DRUGS (9)
  1. ARIPIPRAZOLE [Suspect]
     Indication: SCHIZOPHRENIA
     Route: 048
     Dates: start: 20060815, end: 20060828
  2. RISPERIDONE [Concomitant]
     Route: 048
  3. PROPERICIAZINE [Concomitant]
     Route: 048
  4. HALOPERIDOL [Concomitant]
     Route: 048
  5. PROMETHAZINE [Concomitant]
     Route: 048
  6. BEZAFIBRATE [Concomitant]
     Route: 048
  7. CANDESARTAN CILEXETIL [Concomitant]
     Route: 048
  8. VALPROATE SODIUM [Concomitant]
     Route: 048
  9. BIPERIDEN HYDROCHLORIDE TAB [Concomitant]
     Route: 048

REACTIONS (1)
  - DIABETIC KETOACIDOSIS [None]
